FAERS Safety Report 16189273 (Version 1)
Quarter: 2019Q2

REPORT INFORMATION
  Report Type: Spontaneous
  Country: US (occurrence: US)
  Receive Date: 20190411
  Receipt Date: 20190411
  Transmission Date: 20190711
  Serious: Yes (Other)
  Sender: FDA-Public Use
  Company Number: None

PATIENT
  Age: 66 Year
  Sex: Female

DRUGS (6)
  1. PLAQUENIL 200MG TABLETS [Concomitant]
     Dates: start: 20181226
  2. VITAMIN D3 CAPSULES 2000 IU [Concomitant]
     Dates: start: 20160815
  3. FOLIC ACID 1000MCG TABLETS [Concomitant]
     Dates: start: 20160815
  4. ENBREL [Suspect]
     Active Substance: ETANERCEPT
     Indication: RHEUMATOID ARTHRITIS
     Dosage: ?          OTHER FREQUENCY:ONCE A WEEK;?
     Route: 058
  5. MOTRIN CHILD SUS 100/5ML [Concomitant]
     Dates: start: 20160815
  6. FEXOFENADINE 60MG TABLETS [Concomitant]
     Active Substance: FEXOFENADINE HYDROCHLORIDE
     Dates: start: 20160815

REACTIONS (2)
  - Therapy cessation [None]
  - Pain [None]

NARRATIVE: CASE EVENT DATE: 20190204
